FAERS Safety Report 5762933-3 (Version None)
Quarter: 2008Q2

REPORT INFORMATION
  Report Type: 
  Country: None (occurrence: None)
  Receive Date: 20080609
  Receipt Date: 20080426
  Transmission Date: 20081010
  Serious: No
  Sender: FDA-Public Use
  Company Number: JP-ASTRAZENECA-2008AP04271

PATIENT
  Age: 47 Year
  Sex: Female

DRUGS (2)
  1. SEROQUEL [Suspect]
     Route: 048
     Dates: start: 20040701
  2. SEROQUEL [Suspect]
     Route: 048
     Dates: start: 20050501

REACTIONS (1)
  - NEUTROPHIL COUNT DECREASED [None]
